FAERS Safety Report 5868415-2 (Version None)
Quarter: 2008Q3

REPORT INFORMATION
  Report Type: 
  Country: None (occurrence: None)
  Receive Date: 20080902
  Receipt Date: 20080902
  Transmission Date: 20090109
  Serious: Yes (Death, Hospitalization)
  Sender: FDA-Public Use
  Company Number: None

PATIENT
  Age: 45 Year
  Sex: Female
  Weight: 49.8957 kg

DRUGS (1)
  1. HEPARIN FLUSH [Suspect]
     Indication: INDWELLING CATHETER MANAGEMENT
     Dates: start: 20071213, end: 20080229

REACTIONS (10)
  - APHASIA [None]
  - BLINDNESS [None]
  - DEAFNESS [None]
  - DRUG HYPERSENSITIVITY [None]
  - EATING DISORDER [None]
  - GENERAL PHYSICAL HEALTH DETERIORATION [None]
  - HEPARIN-INDUCED THROMBOCYTOPENIA [None]
  - MULTI-ORGAN FAILURE [None]
  - PLATELET COUNT DECREASED [None]
  - QUALITY OF LIFE DECREASED [None]
